FAERS Safety Report 5747385-1 (Version None)
Quarter: 2008Q2

REPORT INFORMATION
  Report Type: 
  Country: None (occurrence: None)
  Receive Date: 20080523
  Receipt Date: 20080515
  Transmission Date: 20081010
  Serious: Yes (Life-Threatening, Hospitalization)
  Sender: FDA-Public Use
  Company Number: DE-JNJFOC-20080502924

PATIENT
  Sex: Female
  Weight: 69 kg

DRUGS (2)
  1. TOPAMAX [Suspect]
     Indication: MYOCLONIC EPILEPSY
     Route: 048
  2. KEPPRA [Suspect]
     Indication: MYOCLONIC EPILEPSY
     Route: 048

REACTIONS (2)
  - INTENTIONAL OVERDOSE [None]
  - SUICIDE ATTEMPT [None]
